FAERS Safety Report 8861209 (Version 1)
Quarter: 2012Q4

REPORT INFORMATION
  Report Type: 
  Country: US (occurrence: US)
  Receive Date: 20121026
  Receipt Date: 20121026
  Transmission Date: 20130627
  Serious: No
  Sender: FDA-Public Use
  Company Number: US-009507513-1210USA009261

PATIENT
  Sex: Female

DRUGS (2)
  1. IMPLANON [Suspect]
     Dosage: 1 DF, UNK
  2. IMPLANON [Suspect]
     Dosage: 1 DF, 3 years

REACTIONS (1)
  - Metrorrhagia [Unknown]
